FAERS Safety Report 5858429-0 (Version None)
Quarter: 2008Q3

REPORT INFORMATION
  Report Type: 
  Country: None (occurrence: None)
  Receive Date: 20080825
  Receipt Date: 20080806
  Transmission Date: 20090109
  Serious: Yes (Other)
  Sender: FDA-Public Use
  Company Number: 1000000541

PATIENT
  Age: 80 Year
  Sex: Female

DRUGS (4)
  1. CITALOPRAM (TALOPRAM HYDROBROMIDE) (TABLETS) [Suspect]
     Dosage: 20 MG
  2. AMLODIPINE [Concomitant]
  3. NITROGLYCERINE (TRANSDERMAL) [Concomitant]
  4. WARFARIN SODIUM [Concomitant]

REACTIONS (5)
  - CHEST DISCOMFORT [None]
  - DELIRIUM [None]
  - DIZZINESS [None]
  - DRUG INTERACTION [None]
  - FALL [None]
